FAERS Safety Report 9701482 (Version 1)
Quarter: 2013Q4

REPORT INFORMATION
  Report Type: Spontaneous
  Country: US (occurrence: None)
  Receive Date: 20131119
  Receipt Date: 20131119
  Transmission Date: 20140711
  Serious: Yes (Hospitalization)
  Sender: FDA-Public Use
  Company Number: 2013P1020865

PATIENT
  Age: 14 Year
  Sex: Female

DRUGS (3)
  1. BUPROPION [Suspect]
     Route: 048
  2. CITALOPRAM [Suspect]
  3. HYDROZYZINE [Suspect]

REACTIONS (5)
  - Pancreatitis [None]
  - Overdose [None]
  - Convulsion [None]
  - Hypotension [None]
  - Nodal rhythm [None]
